FAERS Safety Report 8552098-7 (Version None)
Quarter: 2012Q3

REPORT INFORMATION
  Report Type: 
  Country: None (occurrence: None)
  Receive Date: 20120731
  Receipt Date: 20120724
  Transmission Date: 20120928
  Serious: Yes (Hospitalization)
  Sender: FDA-Public Use
  Company Number: US-BIOGENIDEC-2012BI025988

PATIENT
  Age: 24 Year
  Sex: Female

DRUGS (1)
  1. TYSABRI [Suspect]
     Indication: MULTIPLE SCLEROSIS
     Route: 042
     Dates: start: 20110523

REACTIONS (5)
  - MULTIPLE SCLEROSIS RELAPSE [None]
  - HEMIPARESIS [None]
  - DEVICE DISLOCATION [None]
  - LOSS OF CONSCIOUSNESS [None]
  - GAIT DISTURBANCE [None]
